FAERS Safety Report 8923332 (Version 1)
Quarter: 2012Q4

REPORT INFORMATION
  Report Type: Spontaneous
  Country: US (occurrence: None)
  Receive Date: 20121114
  Receipt Date: 20121114
  Transmission Date: 20130627
  Serious: Yes (Death, Life-Threatening)
  Sender: FDA-Public Use
  Company Number: 201211000143

PATIENT
  Age: 77 Year
  Sex: Male

DRUGS (4)
  1. INOMAX (NITRIC OXIDE) [Suspect]
     Indication: HEART VALVE REPLACEMENT
     Dosage: 40 ppm, continuous, inhalation
     Route: 055
     Dates: end: 20121029
  2. INOMAX (NITRIC OXIDE) [Suspect]
     Indication: HEART VALVE REPLACEMENT
     Dosage: 10 ppm, continuous, inhalation
     Route: 055
     Dates: start: 20121029, end: 20121029
  3. INOMAX (NITRIC OXIDE) [Suspect]
     Indication: HEART VALVE REPLACEMENT
     Dosage: 5 ppm, continuous, inhalation
     Route: 055
     Dates: start: 20121029, end: 20121029
  4. INOMAX (NITRIC OXIDE) [Suspect]
     Indication: HEART VALVE REPLACEMENT
     Route: 055
     Dates: start: 20121029, end: 20121030

REACTIONS (3)
  - Cardiac arrest [None]
  - Device issue [None]
  - Haemodynamic instability [None]
